FAERS Safety Report 8235386-3 (Version None)
Quarter: 2012Q1

REPORT INFORMATION
  Report Type: 
  Country: None (occurrence: None)
  Receive Date: 20120326
  Receipt Date: 20120320
  Transmission Date: 20120608
  Serious: Yes (Other)
  Sender: FDA-Public Use
  Company Number: US-PFIZER INC-2012038959

PATIENT
  Sex: Female
  Weight: 73.016 kg

DRUGS (9)
  1. LISINOPRIL AND HYDROCHLOROTHIAZIDE [Concomitant]
     Dosage: 12.5/20 MG, 1X/DAY
  2. GLUCOSAMINE [Concomitant]
     Dosage: UNK
  3. LEVOTHYROXINE [Concomitant]
     Dosage: UNK
  4. MULTI-VITAMINS [Concomitant]
     Dosage: UNK
  5. CELEBREX [Suspect]
     Indication: ARTHRITIS
     Dosage: 200 MG, 2X/DAY
     Route: 048
     Dates: start: 20030101
  6. CITALOPRAM [Concomitant]
     Dosage: 20 MG, UNK
  7. CELEBREX [Suspect]
     Dosage: 200 MG, 1X/DAY
  8. FISH OIL [Concomitant]
     Dosage: UNK
  9. CALCIUM WITH VITAMIN D [Concomitant]
     Dosage: UNK

REACTIONS (3)
  - ARACHNOIDITIS [None]
  - PAIN [None]
  - DISCOMFORT [None]
